FAERS Safety Report 17031049 (Version 2)
Quarter: 2019Q4

REPORT INFORMATION
  Report Type: Spontaneous
  Country: BR (occurrence: BR)
  Receive Date: 20191114
  Receipt Date: 20191211
  Transmission Date: 20200122
  Serious: Yes (Hospitalization)
  Sender: FDA-Public Use
  Company Number: BR-SA-2019SA310290

PATIENT
  Age: 28 Year
  Sex: Male
  Weight: 63 kg

DRUGS (3)
  1. LANTUS SOLOSTAR [Suspect]
     Active Substance: INSULIN GLARGINE
     Indication: DIABETES MELLITUS MANAGEMENT
     Dosage: 21 IU IN THE MORNING AND 27 AT NIGHT
     Route: 023
     Dates: start: 2001
  2. APIDRA [Suspect]
     Active Substance: INSULIN GLULISINE
     Indication: DIABETES MELLITUS MANAGEMENT
     Dosage: 12 IU IN THE BREAKFAST, 12 IU BEFORE LUNCH AND 10 IU IN THE DINNER
     Route: 023
     Dates: start: 2017
  3. CARBAMAZEPINE. [Concomitant]
     Active Substance: CARBAMAZEPINE
     Indication: ANXIETY
     Dosage: 1 IN THE MORNING, 1 IN THE AFTERNOON AND 1 AT NIGHT
     Route: 065

REACTIONS (12)
  - Blood glucose decreased [Unknown]
  - Aggression [Unknown]
  - Off label use [Unknown]
  - Injection site bruising [Not Recovered/Not Resolved]
  - Incorrect route of product administration [Unknown]
  - Malaise [Unknown]
  - Asthenia [Unknown]
  - Wrong technique in product usage process [Unknown]
  - Drug ineffective [Unknown]
  - Hypoaesthesia [Recovering/Resolving]
  - Blood glucose increased [Unknown]
  - Product storage error [Unknown]

NARRATIVE: CASE EVENT DATE: 20191105
